FAERS Safety Report 20454486 (Version 1)
Quarter: 2022Q1

REPORT INFORMATION
  Report Type: Spontaneous
  Country: US (occurrence: None)
  Receive Date: 20220209
  Receipt Date: 20220209
  Transmission Date: 20220424
  Serious: Yes (Death)
  Sender: FDA-Public Use
  Company Number: None

PATIENT
  Age: 66 Year
  Sex: Female
  Weight: 53.71 kg

DRUGS (1)
  1. ORBACTIV [Suspect]
     Active Substance: ORITAVANCIN
     Indication: Staphylococcal sepsis
     Dosage: OTHER FREQUENCY : 2 DOSES;?
     Route: 042
     Dates: start: 20220127, end: 20220203

REACTIONS (4)
  - Myocardial infarction [None]
  - Chills [None]
  - Chills [None]
  - Tremor [None]

NARRATIVE: CASE EVENT DATE: 20220203
